FAERS Safety Report 8921364 (Version 1)
Quarter: 2012Q4

REPORT INFORMATION
  Report Type: 
  Country: JP (occurrence: JP)
  Receive Date: 20121122
  Receipt Date: 20121122
  Transmission Date: 20130627
  Serious: Yes (Death, Other)
  Sender: FDA-Public Use
  Company Number: PHHY2012JP091071

PATIENT
  Age: 74 Year
  Sex: Female

DRUGS (2)
  1. CISPLATIN [Suspect]
     Indication: GASTRIC CANCER
     Dosage: 10 mg
     Dates: start: 20010308, end: 20010413
  2. 5-FLUOROURACIL [Suspect]
     Indication: GASTRIC CANCER
     Dosage: 250 mg, QD
     Dates: start: 20010308, end: 20010413

REACTIONS (5)
  - Bronchiectasis [Fatal]
  - Chronic respiratory failure [Fatal]
  - Decreased appetite [Recovered/Resolved]
  - Vomiting [Recovered/Resolved]
  - Blood creatinine increased [Recovered/Resolved]
